FAERS Safety Report 7046009-3 (Version None)
Quarter: 2010Q4

REPORT INFORMATION
  Report Type: 
  Country: None (occurrence: None)
  Receive Date: 20101013
  Receipt Date: 20101013
  Transmission Date: 20110411
  Serious: No
  Sender: FDA-Public Use
  Company Number: None

PATIENT

DRUGS (2)
  1. GADOLINIUM [Suspect]
     Dates: start: 20100625
  2. PERFLUTREN LIPID MICROSPHERE [Suspect]

REACTIONS (2)
  - MALAISE [None]
  - OFF LABEL USE [None]
